FAERS Safety Report 20705073 (Version 13)
Quarter: 2022Q3

REPORT INFORMATION
  Report Type: Report from Study
  Country: BE (occurrence: None)
  Receive Date: 20220413
  Receipt Date: 20220818
  Transmission Date: 20221027
  Serious: Yes (Hospitalization)
  Sender: FDA-Public Use
  Company Number: BE-Eisai Medical Research-EC-2022-112484

PATIENT
  Age: 66 Year
  Sex: Male
  Weight: 89 kg

DRUGS (18)
  1. LENVATINIB [Suspect]
     Active Substance: LENVATINIB
     Indication: Renal cell carcinoma
     Route: 048
     Dates: start: 20220208, end: 20220404
  2. LENVATINIB [Suspect]
     Active Substance: LENVATINIB
     Route: 048
     Dates: start: 20220503, end: 20220607
  3. LENVATINIB [Suspect]
     Active Substance: LENVATINIB
     Route: 048
     Dates: start: 20220615
  4. BELZUTIFAN [Suspect]
     Active Substance: BELZUTIFAN
     Indication: Renal cell carcinoma
     Route: 048
     Dates: start: 20220208, end: 20220404
  5. BELZUTIFAN [Suspect]
     Active Substance: BELZUTIFAN
     Route: 048
     Dates: start: 20220503, end: 20220607
  6. BELZUTIFAN [Suspect]
     Active Substance: BELZUTIFAN
     Route: 048
     Dates: start: 20220615
  7. BISOPROLOL [Concomitant]
     Active Substance: BISOPROLOL
     Dates: start: 201801
  8. BISOPROLOL [Concomitant]
     Active Substance: BISOPROLOL
     Dates: start: 201801, end: 20220309
  9. ASPIRIN [Concomitant]
     Active Substance: ASPIRIN
     Dates: start: 201801
  10. FEBUXOSTAT [Concomitant]
     Active Substance: FEBUXOSTAT
     Dates: start: 202012
  11. HYDROCHLOROTHIAZIDE [Concomitant]
     Active Substance: HYDROCHLOROTHIAZIDE
     Dates: start: 20220309
  12. OLMESARTAN [Concomitant]
     Active Substance: OLMESARTAN
     Dates: start: 20220309
  13. LEVOTHYROXINE SODIUM [Concomitant]
     Active Substance: LEVOTHYROXINE SODIUM
     Dates: start: 20220312
  14. LEVOTHYROXINE SODIUM [Concomitant]
     Active Substance: LEVOTHYROXINE SODIUM
     Dates: start: 20220319, end: 20220405
  15. FENOFIBRATE [Concomitant]
     Active Substance: FENOFIBRATE
     Dates: start: 20201013, end: 20220405
  16. HYDROCHLOROTHIAZIDE\OLMESARTAN MEDOXOMIL [Concomitant]
     Active Substance: HYDROCHLOROTHIAZIDE\OLMESARTAN MEDOXOMIL
     Dates: start: 201901, end: 20220405
  17. SIMVASTATIN [Concomitant]
     Active Substance: SIMVASTATIN
     Dates: start: 20201013, end: 20220405
  18. MAGNETOP [Concomitant]
     Dates: start: 20220309

REACTIONS (4)
  - Anaemia [Not Recovered/Not Resolved]
  - Renal failure [Recovered/Resolved]
  - Asthenia [Recovered/Resolved]
  - Acute kidney injury [Recovered/Resolved]

NARRATIVE: CASE EVENT DATE: 20220322
